FAERS Safety Report 14003735 (Version 1)
Quarter: 2017Q3

REPORT INFORMATION
  Report Type: Spontaneous
  Country: US (occurrence: US)
  Receive Date: 20170922
  Receipt Date: 20170922
  Transmission Date: 20171128
  Serious: No
  Sender: FDA-Public Use
  Company Number: US-JNJFOC-20170703175

PATIENT
  Age: 52 Year
  Sex: Female
  Weight: 82.1 kg

DRUGS (14)
  1. DEPAKOTE [Concomitant]
     Active Substance: DIVALPROEX SODIUM
     Indication: DRUG THERAPY
     Route: 048
  2. ZOLOFT [Concomitant]
     Active Substance: SERTRALINE HYDROCHLORIDE
     Indication: DEPRESSION
     Route: 048
  3. BACLOFEN. [Concomitant]
     Active Substance: BACLOFEN
     Indication: MUSCLE SPASMS
     Route: 048
  4. TRAZODONE [Concomitant]
     Active Substance: TRAZODONE HYDROCHLORIDE
     Indication: SLEEP DISORDER
     Route: 048
  5. ATENOLOL. [Concomitant]
     Active Substance: ATENOLOL
     Indication: HEART RATE ABNORMAL
     Route: 048
  6. SANDOZ FENTANYL [Suspect]
     Active Substance: FENTANYL
     Indication: PRODUCT USED FOR UNKNOWN INDICATION
     Route: 065
  7. GABAPENTIN. [Concomitant]
     Active Substance: GABAPENTIN
     Indication: PAIN
     Route: 048
  8. OXYCODONE [Concomitant]
     Active Substance: OXYCODONE
     Indication: BREAKTHROUGH PAIN
     Route: 048
  9. VALIUM [Concomitant]
     Active Substance: DIAZEPAM
     Indication: MUSCLE SPASMS
     Dosage: 2.5 MG TO 7.5 MG, DO NOT EXCEED 7.5 MG DAILY
     Route: 048
  10. FENTANYL. [Suspect]
     Active Substance: FENTANYL
     Indication: PAIN
     Route: 062
     Dates: start: 2014
  11. FENTANYL. [Suspect]
     Active Substance: FENTANYL
     Indication: PAIN
     Route: 062
     Dates: start: 201405, end: 2014
  12. BENTYL [Concomitant]
     Active Substance: DICYCLOMINE HYDROCHLORIDE
     Indication: ABDOMINAL DISCOMFORT
     Route: 048
  13. OLANZAPINE. [Concomitant]
     Active Substance: OLANZAPINE
     Indication: ANXIETY
     Route: 048
  14. VALIUM [Concomitant]
     Active Substance: DIAZEPAM
     Indication: ANXIETY
     Dosage: 2.5 MG TO 7.5 MG, DO NOT EXCEED 7.5 MG DAILY
     Route: 048

REACTIONS (8)
  - Visual impairment [Not Recovered/Not Resolved]
  - Inappropriate schedule of drug administration [Unknown]
  - Feeling abnormal [Recovered/Resolved]
  - Depression [Unknown]
  - Drug ineffective [Unknown]
  - Therapeutic response increased [Unknown]
  - Withdrawal syndrome [Unknown]
  - Product taste abnormal [Recovered/Resolved]

NARRATIVE: CASE EVENT DATE: 201405
